FAERS Safety Report 21954504 (Version 2)
Quarter: 2025Q3

REPORT INFORMATION
  Report Type: Spontaneous
  Country: US (occurrence: US)
  Receive Date: 20230205
  Receipt Date: 20250707
  Transmission Date: 20251021
  Serious: Yes (Life-Threatening, Hospitalization, Other)
  Sender: AUROBINDO
  Company Number: US-MLMSERVICE-20230123-4050929-1

PATIENT
  Sex: Male

DRUGS (2)
  1. ALBUTEROL [Suspect]
     Active Substance: ALBUTEROL
     Indication: Asthmatic crisis
     Dosage: 20 MILLIGRAM, EVERY HOUR
     Route: 065
  2. MAGNESIUM SULFATE [Concomitant]
     Active Substance: MAGNESIUM SULFATE
     Indication: Asthmatic crisis
     Route: 065

REACTIONS (7)
  - Shock [Unknown]
  - Acute pulmonary oedema [Unknown]
  - Cor triatriatum [Unknown]
  - Respiratory failure [Unknown]
  - Condition aggravated [Unknown]
  - Left ventricular end-diastolic pressure decreased [Unknown]
  - Tachycardia [Unknown]
